FAERS Safety Report 5243275-1 (Version None)
Quarter: 2007Q1

REPORT INFORMATION
  Report Type: 
  Country: None (occurrence: None)
  Receive Date: 20070215
  Receipt Date: 20070208
  Transmission Date: 20070707
  Serious: Yes (Death, Hospitalization)
  Sender: FDA-Public Use
  Company Number: TAP2007Q00176

PATIENT
  Age: 85 Year
  Sex: Male

DRUGS (9)
  1. LUPRON DEPOT-4 [Suspect]
     Indication: PROSTATE CANCER
     Dosage: 30 MG, 1 IN 4 M, INTRAMUSCULAR
     Route: 030
     Dates: start: 20060620, end: 20061025
  2. GLYBURIDE [Concomitant]
  3. COREG [Concomitant]
  4. PRILOSEC [Concomitant]
  5. ASPIRIN [Concomitant]
  6. WARFARIN SODIUM [Concomitant]
  7. CRESTOR [Concomitant]
  8. CASODEX [Concomitant]
  9. FLOMAX (MORNIFLUMATE) [Concomitant]

REACTIONS (5)
  - CARDIAC DISORDER [None]
  - CONDITION AGGRAVATED [None]
  - METASTASES TO BONE [None]
  - PROSTATE CANCER [None]
  - RENAL DISORDER [None]
